FAERS Safety Report 5870010-6 (Version None)
Quarter: 2008Q3

REPORT INFORMATION
  Report Type: 
  Country: None (occurrence: None)
  Receive Date: 20080904
  Receipt Date: 20080527
  Transmission Date: 20090109
  Serious: No
  Sender: FDA-Public Use
  Company Number: US-BAYER-200824475NA

PATIENT
  Sex: Female

DRUGS (1)
  1. CLIMARA [Suspect]
     Indication: UNEVALUABLE EVENT
     Route: 062

REACTIONS (3)
  - FEELING HOT [None]
  - MOOD ALTERED [None]
  - PHARMACEUTICAL PRODUCT COMPLAINT [None]
